FAERS Safety Report 12782571 (Version 1)
Quarter: 2016Q3

REPORT INFORMATION
  Report Type: Spontaneous
  Country: US (occurrence: US)
  Receive Date: 20160926
  Receipt Date: 20160926
  Transmission Date: 20161109
  Serious: Yes (Disabling)
  Sender: FDA-Public Use
  Company Number: None

PATIENT
  Age: 55 Year
  Sex: Female
  Weight: 87.3 kg

DRUGS (13)
  1. CLONODIN [Concomitant]
  2. ASPIRIN. [Concomitant]
     Active Substance: ASPIRIN
  3. INSULIN [Concomitant]
     Active Substance: INSULIN NOS
  4. VITAMIN D3 [Concomitant]
     Active Substance: CHOLECALCIFEROL
  5. VITAMIN D3 [Concomitant]
     Active Substance: CHOLECALCIFEROL
  6. CRESTOR [Suspect]
     Active Substance: ROSUVASTATIN CALCIUM
     Indication: BLOOD TRIGLYCERIDES INCREASED
     Route: 048
     Dates: start: 20160606, end: 20160923
  7. MULTI VITAMIN [Concomitant]
     Active Substance: VITAMINS
  8. BABY ASPIRIN [Concomitant]
     Active Substance: ASPIRIN
  9. MULTI VUTAMIN [Concomitant]
  10. METAPROLOL [Concomitant]
     Active Substance: METOPROLOL
  11. CRESTOR [Suspect]
     Active Substance: ROSUVASTATIN CALCIUM
     Indication: HYPERLIPIDAEMIA
     Route: 048
     Dates: start: 20160606, end: 20160923
  12. AMLODIPINE [Concomitant]
     Active Substance: AMLODIPINE BESYLATE
  13. PLAVIX [Concomitant]
     Active Substance: CLOPIDOGREL BISULFATE

REACTIONS (5)
  - Dyschezia [None]
  - Hyperhidrosis [None]
  - Dysuria [None]
  - Gait disturbance [None]
  - Alopecia [None]

NARRATIVE: CASE EVENT DATE: 20160903
